FAERS Safety Report 20717938 (Version 2)
Quarter: 2022Q2

REPORT INFORMATION
  Report Type: Spontaneous
  Country: US (occurrence: US)
  Receive Date: 20220418
  Receipt Date: 20220513
  Transmission Date: 20220720
  Serious: No
  Sender: FDA-Public Use
  Company Number: US-SA-SAC20220413001664

PATIENT
  Age: 61 Year
  Sex: Female

DRUGS (1)
  1. DUPIXENT [Suspect]
     Active Substance: DUPILUMAB
     Indication: Hypersensitivity
     Dosage: 300 MG, FREQUENCY OTHER
     Route: 058
     Dates: start: 202109, end: 20220412

REACTIONS (1)
  - Unintentional use for unapproved indication [Unknown]

NARRATIVE: CASE EVENT DATE: 20210901
